FAERS Safety Report 9941474 (Version 1)
Quarter: 2014Q1

REPORT INFORMATION
  Report Type: Report from Study
  Country: US (occurrence: US)
  Receive Date: 20140303
  Receipt Date: 20140303
  Transmission Date: 20141002
  Serious: No
  Sender: FDA-Public Use
  Company Number: US-ABBVIE-13P-163-1042311-00

PATIENT
  Age: 43 Year
  Sex: Female
  Weight: 93.98 kg

DRUGS (8)
  1. HUMIRA [Suspect]
     Indication: CROHN^S DISEASE
     Dates: start: 2010
  2. ATENOLOL [Concomitant]
     Indication: HYPERTENSION
  3. REGLAN [Concomitant]
     Indication: IMPAIRED GASTRIC EMPTYING
  4. DICYCLOMINE [Concomitant]
     Indication: CROHN^S DISEASE
  5. CELEXA [Concomitant]
     Indication: DEPRESSION
  6. LORTAB [Concomitant]
     Indication: PAIN
  7. XANAX [Concomitant]
     Indication: PAIN
  8. ASACOL [Concomitant]
     Indication: CROHN^S DISEASE

REACTIONS (6)
  - Fatigue [Not Recovered/Not Resolved]
  - Abdominal pain [Not Recovered/Not Resolved]
  - Nausea [Not Recovered/Not Resolved]
  - Haematochezia [Not Recovered/Not Resolved]
  - Asthenia [Not Recovered/Not Resolved]
  - Hepatic enzyme increased [Not Recovered/Not Resolved]
